FAERS Safety Report 8375910-3 (Version None)
Quarter: 2012Q2

REPORT INFORMATION
  Report Type: 
  Country: None (occurrence: None)
  Receive Date: 20120522
  Receipt Date: 20120510
  Transmission Date: 20120825
  Serious: Yes (Hospitalization)
  Sender: FDA-Public Use
  Company Number: US-BRISTOL-MYERS SQUIBB COMPANY-16586638

PATIENT
  Age: 55 Year
  Sex: Female

DRUGS (14)
  1. OXYCODONE HCL [Concomitant]
     Indication: ABDOMINAL PAIN
     Dates: start: 20120218
  2. MULTI-VITAMIN [Concomitant]
     Indication: SUPPLEMENTATION THERAPY
     Dates: start: 20100101
  3. ONDANSETRON [Concomitant]
     Indication: PROPHYLAXIS OF NAUSEA AND VOMITING
     Route: 042
     Dates: start: 20120117
  4. FAMOTIDINE [Concomitant]
     Indication: PROPHYLAXIS OF NAUSEA AND VOMITING
     Route: 042
     Dates: start: 20120117
  5. SENNOSIDE A+B [Concomitant]
     Dates: start: 20120112
  6. DIPHENHYDRAMINE HCL [Concomitant]
     Indication: PROPHYLAXIS
     Dosage: IV 50MG TILL 17JAN12. ORAL 50MG FROM 20FEB12
     Route: 042
     Dates: start: 20120117
  7. DEXAMETHASONE [Concomitant]
     Indication: PROPHYLAXIS
     Dates: start: 20120117
  8. POTASSIUM GLUCONATE TAB [Concomitant]
     Indication: HYPOKALAEMIA
     Dates: start: 20120315, end: 20120408
  9. ACETAMINOPHEN [Concomitant]
     Indication: PAIN
     Dates: start: 20120312
  10. METOCLOPRAMIDE [Concomitant]
     Dates: start: 20120124
  11. LOPERAMIDE [Concomitant]
     Indication: DIARRHOEA
     Dates: start: 20120403
  12. CALCIUM CARBONATE [Concomitant]
     Indication: SUPPLEMENTATION THERAPY
     Dates: start: 20100101
  13. PACLITAXEL [Suspect]
     Indication: NEOPLASM
     Route: 065
     Dates: start: 20120117, end: 20120402
  14. ERGOCALCIFEROL [Concomitant]
     Indication: SUPPLEMENTATION THERAPY

REACTIONS (4)
  - BLOOD MAGNESIUM DECREASED [None]
  - PANCREATITIS ACUTE [None]
  - DIARRHOEA [None]
  - HYPOKALAEMIA [None]
